FAERS Safety Report 4719975-6 (Version None)
Quarter: 2005Q3

REPORT INFORMATION
  Report Type: 
  Country: None (occurrence: None)
  Receive Date: 20050721
  Receipt Date: 20040305
  Transmission Date: 20060218
  Serious: Yes (Other)
  Sender: FDA-Public Use
  Company Number: US-GLAXOSMITHKLINE-A0501453A

PATIENT
  Age: 55 Year
  Sex: Female

DRUGS (5)
  1. IMITREX [Suspect]
     Indication: MIGRAINE
     Dosage: 25MG AS REQUIRED
     Route: 048
  2. VALIUM [Concomitant]
     Route: 048
  3. DARVOCET [Concomitant]
  4. FIORICET [Concomitant]
  5. MIGRANAL [Concomitant]

REACTIONS (2)
  - BALANCE DISORDER [None]
  - DEAFNESS [None]
